FAERS Safety Report 4347459-6 (Version None)
Quarter: 2004Q2

REPORT INFORMATION
  Report Type: 
  Country: None (occurrence: None)
  Receive Date: 20040421
  Receipt Date: 20040212
  Transmission Date: 20050107
  Serious: Yes (Other)
  Sender: FDA-Public Use
  Company Number: 2003041760

PATIENT
  Age: 38 Year
  Sex: Female

DRUGS (2)
  1. RELPAX [Suspect]
     Indication: MIGRAINE
     Dosage: 40 MG (PRN), ORAL
     Route: 048
     Dates: start: 20031216
  2. VALDECOXIB [Concomitant]

REACTIONS (3)
  - DYSPHAGIA [None]
  - MIGRAINE [None]
  - THROAT TIGHTNESS [None]
